FAERS Safety Report 8008371-4 (Version None)
Quarter: 2011Q4

REPORT INFORMATION
  Report Type: 
  Country: None (occurrence: None)
  Receive Date: 20111227
  Receipt Date: 20111215
  Transmission Date: 20120403
  Serious: Yes (Other)
  Sender: FDA-Public Use
  Company Number: US-BAYER-2011-122038

PATIENT
  Age: 65 Year
  Sex: Female
  Weight: 70 kg

DRUGS (5)
  1. ALKA-SELTZER PLUS SEVERE SINUS CONGESTION + COUGH LIQUID GELS [Suspect]
     Indication: EYE PRURITUS
     Dosage: 1 DF, ONCE
     Route: 048
     Dates: start: 20111214, end: 20111214
  2. LISINOPRIL AND HYDROCHLOROTHIAZIDE [Concomitant]
  3. VITAMIN D [Concomitant]
  4. ALKA-SELTZER PLUS SEVERE SINUS CONGESTION + COUGH LIQUID GELS [Suspect]
     Indication: LACRIMATION INCREASED
  5. EQUATE ASPIRIN [Concomitant]

REACTIONS (1)
  - HYPERTENSION [None]
